FAERS Safety Report 4634884-9 (Version None)
Quarter: 2005Q2

REPORT INFORMATION
  Report Type: 
  Country: None (occurrence: None)
  Receive Date: 20050412
  Receipt Date: 20050329
  Transmission Date: 20051028
  Serious: Yes (Life-Threatening, Hospitalization)
  Sender: FDA-Public Use
  Company Number: 2004SE06715

PATIENT
  Age: 80 Year
  Sex: Male

DRUGS (16)
  1. ROSUVASTATIN [Suspect]
     Indication: CARDIAC FAILURE
     Dosage: 10 MG DAILY PO
     Route: 048
     Dates: start: 20040310, end: 20041203
  2. INHIBACE [Concomitant]
  3. DOXANORM [Concomitant]
  4. CORDARONE [Concomitant]
  5. POLOCARD [Concomitant]
  6. FUROSEMIDE [Concomitant]
  7. VEROSPIRON [Concomitant]
  8. MEDIGOX [Concomitant]
  9. CLEXANE [Concomitant]
  10. ACENOCUMAROL [Concomitant]
  11. BETALOC ZOK ^ASTRA^ [Concomitant]
  12. HISTAC [Concomitant]
  13. POLPRAZOL [Concomitant]
  14. LOPERAMID [Concomitant]
  15. SODIUM CHLORIDE 0.9% [Concomitant]
  16. GLUCOSA 5% [Concomitant]

REACTIONS (12)
  - ATRIAL FLUTTER [None]
  - BLOOD PRESSURE DIASTOLIC DECREASED [None]
  - CARDIAC FAILURE [None]
  - CHEST PAIN [None]
  - CONDITION AGGRAVATED [None]
  - DIARRHOEA [None]
  - DYSPNOEA [None]
  - GASTRITIS [None]
  - HEPATIC FAILURE [None]
  - INTERNATIONAL NORMALISED RATIO INCREASED [None]
  - PALPITATIONS [None]
  - RENAL FAILURE ACUTE [None]
